FAERS Safety Report 23221070 (Version 2)
Quarter: 2023Q4

REPORT INFORMATION
  Report Type: Spontaneous
  Country: JP (occurrence: None)
  Receive Date: 20231123
  Receipt Date: 20231130
  Transmission Date: 20240110
  Serious: No
  Sender: FDA-Public Use
  Company Number: 2023A262141

PATIENT
  Age: 76 Year
  Sex: Female

DRUGS (4)
  1. ONDEXXYA [Suspect]
     Active Substance: ANDEXANET ALFA
     Indication: Thalamus haemorrhage
     Dosage: INTRAVENOUS INFUSION FOR 400 MG AT 30 MG/MIN FOLLOWED BY 480 MG AT 4 MG/MIN IN 2 HRS
     Route: 040
  2. EDOXABAN TOSYLATE [Concomitant]
     Active Substance: EDOXABAN TOSYLATE
     Dosage: IN THE MORNING
     Route: 048
  3. NICARDIPINE HYDROCHLORIDE [Concomitant]
     Active Substance: NICARDIPINE HYDROCHLORIDE
     Dosage: DOSE UNKNOWN
     Route: 042
  4. TRANEXAMIC ACID [Concomitant]
     Active Substance: TRANEXAMIC ACID
     Indication: Thalamus haemorrhage
     Dosage: DOSE UNKNOWN

REACTIONS (1)
  - No adverse event [Unknown]
